FAERS Safety Report 6781689-9 (Version None)
Quarter: 2010Q2

REPORT INFORMATION
  Report Type: 
  Country: None (occurrence: None)
  Receive Date: 20100617
  Receipt Date: 20100617
  Transmission Date: 20101027
  Serious: Yes (Hospitalization, Disabling)
  Sender: FDA-Public Use
  Company Number: None

PATIENT
  Age: 65 Year
  Sex: Male
  Weight: 118 kg

DRUGS (2)
  1. LINEZOLID [Suspect]
     Indication: ENTEROCOCCAL INFECTION
     Dosage: 600 MG EVERY 12 HOURS PO
     Route: 048
     Dates: start: 20100605, end: 20100607
  2. ESCITALOPRAM 20 MG FOREST [Suspect]
     Indication: DEPRESSION
     Dosage: 20 MG DAILY PO
     Route: 048
     Dates: start: 20070628, end: 20100607

REACTIONS (5)
  - ENTEROCOCCAL INFECTION [None]
  - FOAMING AT MOUTH [None]
  - SEROTONIN SYNDROME [None]
  - SOMNOLENCE [None]
  - WOUND [None]
